FAERS Safety Report 7561902-0 (Version None)
Quarter: 2011Q2

REPORT INFORMATION
  Report Type: 
  Country: None (occurrence: None)
  Receive Date: 20110621
  Receipt Date: 20110610
  Transmission Date: 20111010
  Serious: Yes (Other)
  Sender: FDA-Public Use
  Company Number: ZA-ABBOTT-11P-143-0732287-01

PATIENT
  Sex: Male
  Weight: 32.3 kg

DRUGS (4)
  1. LAMIVUDINE [Concomitant]
     Indication: HIV INFECTION
     Dates: start: 20061214
  2. ATAZANAVIR [Concomitant]
     Indication: HIV INFECTION
     Dates: start: 20061214
  3. RITONAVIR [Suspect]
     Indication: HIV INFECTION
     Route: 048
     Dates: start: 20061214
  4. STAVUDINE [Concomitant]
     Indication: HIV INFECTION
     Dates: start: 20061214

REACTIONS (2)
  - BLOOD BILIRUBIN INCREASED [None]
  - BLOOD BILIRUBIN UNCONJUGATED INCREASED [None]
